FAERS Safety Report 5273635-4 (Version None)
Quarter: 2007Q1

REPORT INFORMATION
  Report Type: 
  Country: None (occurrence: None)
  Receive Date: 20070321
  Receipt Date: 20070321
  Transmission Date: 20070707
  Serious: No
  Sender: FDA-Public Use
  Company Number: None

PATIENT
  Sex: Female
  Weight: 75.7507 kg

DRUGS (11)
  1. CARBOPLATIN [Suspect]
     Indication: BREAST CANCER
     Dosage: 195 MG IV
     Route: 042
     Dates: start: 20070101, end: 20070101
  2. TYLENOL [Concomitant]
  3. BENADRYL [Concomitant]
  4. PEPCID [Concomitant]
  5. KYTRIL [Concomitant]
  6. DEXAMETHASONE [Concomitant]
  7. ATIVAN [Concomitant]
  8. TAXOL [Concomitant]
  9. HERCEPTIN [Concomitant]
  10. ATIVAN [Concomitant]
  11. COMPAZINE [Concomitant]

REACTIONS (2)
  - HOT FLUSH [None]
  - INFUSION RELATED REACTION [None]
